FAERS Safety Report 4658567-4 (Version None)
Quarter: 2005Q2

REPORT INFORMATION
  Report Type: 
  Country: None (occurrence: None)
  Receive Date: 20050509
  Receipt Date: 20050425
  Transmission Date: 20051028
  Serious: Yes (Hospitalization)
  Sender: FDA-Public Use
  Company Number: VIS10191.2005

PATIENT
  Age: 51 Year
  Sex: Male
  Weight: 68.0396 kg

DRUGS (10)
  1. VISICOL [Suspect]
     Indication: COLONOSCOPY
     Dosage: 30 MG ONCE PO
     Route: 048
     Dates: start: 20050420, end: 20050420
  2. BEXTRA [Concomitant]
  3. DESYREL [Concomitant]
  4. ALLEGRA [Concomitant]
  5. ZOLOFT [Concomitant]
  6. HYDROCODONE BITARTRATE [Concomitant]
  7. DARVOCET [Concomitant]
  8. XANAX [Concomitant]
  9. PROPECIA [Concomitant]
  10. MULTIVITAMIN [Concomitant]

REACTIONS (6)
  - ABDOMINAL DISCOMFORT [None]
  - CONFUSIONAL STATE [None]
  - EXPRESSIVE LANGUAGE DISORDER [None]
  - NAUSEA [None]
  - SPEECH DISORDER [None]
  - TRANSIENT ISCHAEMIC ATTACK [None]
